FAERS Safety Report 5152473-7 (Version None)
Quarter: 2006Q4

REPORT INFORMATION
  Report Type: 
  Country: None (occurrence: None)
  Receive Date: 20061109
  Receipt Date: 20061103
  Transmission Date: 20070319
  Serious: Yes (Hospitalization)
  Sender: FDA-Public Use
  Company Number: 2006-05687

PATIENT
  Age: 6 Month
  Sex: Female

DRUGS (11)
  1. ACYCLOVIR [Suspect]
     Indication: HERPES SIMPLEX
     Dosage: SEE IMAGE
     Dates: start: 20060101, end: 20060101
  2. ACYCLOVIR [Suspect]
     Indication: PROPHYLAXIS
     Dosage: SEE IMAGE
     Dates: start: 20060101, end: 20060101
  3. ACYCLOVIR [Suspect]
     Indication: HERPES SIMPLEX
     Dosage: SEE IMAGE
     Dates: start: 20060101, end: 20060101
  4. ACYCLOVIR [Suspect]
     Indication: PROPHYLAXIS
     Dosage: SEE IMAGE
     Dates: start: 20060101, end: 20060101
  5. NEORAL [Concomitant]
  6. FLUCONAZOLE [Concomitant]
  7. AZATHIOPRINE [Concomitant]
  8. STEROIDS [Concomitant]
  9. TICARCILLIN DISODIUM/CLAVULANATE POTASSIUM (CLAVULANATE POTASSIUM, TIC [Concomitant]
  10. FENTANYL [Concomitant]
  11. MIDAZOLAM HCL [Concomitant]

REACTIONS (3)
  - DRUG LEVEL INCREASED [None]
  - ENCEPHALOPATHY [None]
  - NEUROTOXICITY [None]
